FAERS Safety Report 8161539-9 (Version None)
Quarter: 2012Q1

REPORT INFORMATION
  Report Type: 
  Country: None (occurrence: None)
  Receive Date: 20120222
  Receipt Date: 20120222
  Transmission Date: 20120608
  Serious: Yes (Other)
  Sender: FDA-Public Use
  Company Number: None

PATIENT
  Age: 25 Year
  Sex: Male
  Weight: 75.7507 kg

DRUGS (2)
  1. OLANZAPINE [Suspect]
     Indication: BIPOLAR II DISORDER
     Dosage: GENERIC OLANZAPINE 10 MG HS ORAL
     Route: 048
     Dates: start: 20120216
  2. OLANZAPINE [Suspect]
     Indication: ATTENTION DEFICIT/HYPERACTIVITY DISORDER
     Dosage: GENERIC OLANZAPINE 10 MG HS ORAL
     Route: 048
     Dates: start: 20120216

REACTIONS (7)
  - ABDOMINAL PAIN UPPER [None]
  - FORMICATION [None]
  - IRRITABILITY [None]
  - HEADACHE [None]
  - PRURITUS [None]
  - AGITATION [None]
  - INSOMNIA [None]
